FAERS Safety Report 18574726 (Version 3)
Quarter: 2020Q4

REPORT INFORMATION
  Report Type: Report from Study
  Country: DE (occurrence: DE)
  Receive Date: 20201203
  Receipt Date: 20201231
  Transmission Date: 20210114
  Serious: Yes (Hospitalization)
  Sender: FDA-Public Use
  Company Number: DE-ROCHE-2721502

PATIENT
  Age: 75 Year
  Sex: Male

DRUGS (10)
  1. OMEPRAZOLE. [Concomitant]
     Active Substance: OMEPRAZOLE
  2. BUDESONIDE;FORMOTEROL [Concomitant]
     Active Substance: BUDESONIDE\FORMOTEROL
  3. TAMSULOSIN [Concomitant]
     Active Substance: TAMSULOSIN
     Route: 048
     Dates: start: 20171107
  4. PANTOPRAZOL [Concomitant]
     Active Substance: PANTOPRAZOLE SODIUM
     Route: 048
     Dates: start: 20200527
  5. VENETOCLAX. [Suspect]
     Active Substance: VENETOCLAX
     Indication: CHRONIC LYMPHOCYTIC LEUKAEMIA
     Dosage: ON 10/NOV/2016, HE RECEIVED MOST RECENT DOSE OF VENETOCLAX (200 MG) PRIOR TO AE.
     Route: 065
     Dates: start: 20150804
  6. OBINUTUZUMAB. [Suspect]
     Active Substance: OBINUTUZUMAB
     Indication: CHRONIC LYMPHOCYTIC LEUKAEMIA
     Dosage: ON 06/AUG/2016, HE RECEIVED MOST RECENT DOSE OF OBINUTUZUMAB (1000 MG) PRIOR TO ADVERSE EVENT (AE).
     Route: 042
     Dates: start: 20150706
  7. BENDAMUSTINE [Suspect]
     Active Substance: BENDAMUSTINE
     Indication: CHRONIC LYMPHOCYTIC LEUKAEMIA
     Dosage: ON 10/JUN/2015, HE RECEIVED MOST RECENT DOSE OF BENDAMUSTINE (148 MG) PRIOR TO AE.
     Route: 042
     Dates: start: 20150609
  8. BIMATOPROST. [Concomitant]
     Active Substance: BIMATOPROST
     Dates: start: 20200928
  9. DICLOFENAC [Concomitant]
     Active Substance: DICLOFENAC
  10. RAMIPRIL. [Concomitant]
     Active Substance: RAMIPRIL

REACTIONS (1)
  - Prostate cancer [Recovered/Resolved]

NARRATIVE: CASE EVENT DATE: 20200928
